FAERS Safety Report 13989837 (Version 1)
Quarter: 2017Q3

REPORT INFORMATION
  Report Type: Report from Study
  Country: BR (occurrence: BR)
  Receive Date: 20170920
  Receipt Date: 20170920
  Transmission Date: 20171128
  Serious: Yes (Other)
  Sender: FDA-Public Use
  Company Number: PHHY2015BR039165

PATIENT
  Sex: Male
  Weight: 19 kg

DRUGS (1)
  1. TRILEPTAL [Suspect]
     Active Substance: OXCARBAZEPINE
     Indication: SEIZURE
     Dosage: 60 MG, BID
     Route: 048

REACTIONS (3)
  - Wrong technique in product usage process [Unknown]
  - Syringe issue [Unknown]
  - Autism spectrum disorder [Unknown]
